FAERS Safety Report 18251884 (Version 3)
Quarter: 2021Q2

REPORT INFORMATION
  Report Type: Spontaneous
  Country: BR (occurrence: BR)
  Receive Date: 20200910
  Receipt Date: 20210526
  Transmission Date: 20210717
  Serious: Yes (Other)
  Sender: FDA-Public Use
  Company Number: BR-ALEXION-A202013167

PATIENT
  Sex: Female

DRUGS (2)
  1. SOLIRIS [Suspect]
     Active Substance: ECULIZUMAB
     Indication: PAROXYSMAL NOCTURNAL HAEMOGLOBINURIA
     Dosage: UNK
     Route: 065
     Dates: start: 2018
  2. SOLIRIS [Suspect]
     Active Substance: ECULIZUMAB
     Dosage: 4 INFUSIONS FOR 2 MONTHS
     Route: 065
     Dates: start: 202007

REACTIONS (3)
  - Haemolytic anaemia [Not Recovered/Not Resolved]
  - Product dose omission issue [Unknown]
  - Product counterfeit [Unknown]
